FAERS Safety Report 5643458-2 (Version None)
Quarter: 2008Q1

REPORT INFORMATION
  Report Type: 
  Country: None (occurrence: None)
  Receive Date: 20080228
  Receipt Date: 20080218
  Transmission Date: 20080703
  Serious: Yes (Other)
  Sender: FDA-Public Use
  Company Number: US-PFIZER INC-2008014947

PATIENT
  Age: 66 Year
  Sex: Male

DRUGS (11)
  1. MEDROL [Suspect]
     Indication: TENDONITIS
  2. NASALCROM [Concomitant]
  3. NASACORT [Concomitant]
  4. LIPITOR [Concomitant]
  5. TAMSULOSIN HCL [Concomitant]
  6. VALSARTAN [Concomitant]
  7. LASIX [Concomitant]
  8. ASTELIN [Concomitant]
  9. MIRAPEX [Concomitant]
  10. VOLTAREN [Concomitant]
  11. IBUPROFEN [Concomitant]

REACTIONS (2)
  - DERMATITIS CONTACT [None]
  - NO REACTION ON PREVIOUS EXPOSURE TO DRUG [None]
